FAERS Safety Report 4695235-7 (Version None)
Quarter: 2005Q2

REPORT INFORMATION
  Report Type: 
  Country: None (occurrence: None)
  Receive Date: 20050614
  Receipt Date: 20050318
  Transmission Date: 20051028
  Serious: Yes (Hospitalization)
  Sender: FDA-Public Use
  Company Number: US_0502113235

PATIENT
  Age: 57 Year
  Sex: Male

DRUGS (4)
  1. CIALIS [Suspect]
     Indication: ERECTILE DYSFUNCTION
     Dates: start: 20040914, end: 20040914
  2. GLUCOTROL [Concomitant]
  3. INSULIN [Concomitant]
  4. ZYRTEC [Concomitant]

REACTIONS (1)
  - HEADACHE [None]
